FAERS Safety Report 9785140 (Version 1)
Quarter: 2013Q4

REPORT INFORMATION
  Report Type: Spontaneous
  Country: US (occurrence: US)
  Receive Date: 20131227
  Receipt Date: 20131227
  Transmission Date: 20140711
  Serious: Yes (Other)
  Sender: FDA-Public Use
  Company Number: US-TEVA-451947USA

PATIENT
  Age: 83 Year
  Sex: Male
  Weight: 77.18 kg

DRUGS (4)
  1. PROAIR HFA [Suspect]
     Indication: DYSPNOEA EXERTIONAL
     Dates: start: 20131216, end: 20131217
  2. METOPROLOL [Concomitant]
     Indication: HYPERTENSION
  3. LISINOPRIL [Concomitant]
     Indication: HYPERTENSION
  4. TERAZOSIN [Concomitant]
     Indication: BENIGN PROSTATIC HYPERPLASIA

REACTIONS (6)
  - Throat tightness [Recovered/Resolved]
  - Presyncope [Recovered/Resolved]
  - Dyspnoea [Recovered/Resolved]
  - Dyspnoea [Recovered/Resolved]
  - Tension [Recovered/Resolved]
  - Wheezing [Unknown]
